FAERS Safety Report 4463876-8 (Version None)
Quarter: 2004Q3

REPORT INFORMATION
  Report Type: 
  Country: None (occurrence: None)
  Receive Date: 20040929
  Receipt Date: 20040916
  Transmission Date: 20050211
  Serious: Yes (Hospitalization, Other)
  Sender: FDA-Public Use
  Company Number: 2004032055

PATIENT
  Sex: Female
  Weight: 2.81 kg

DRUGS (3)
  1. VIRACEPT [Suspect]
     Indication: HIV TEST POSITIVE
     Dosage: ORAL
     Route: 048
     Dates: start: 20030715, end: 20030922
  2. ZIDOVUDINE W/LAMIVUDINE (LAMIVUDINE, ZIDOVUDINE) [Suspect]
     Indication: HIV TEST POSITIVE
     Dosage: ORAL
     Route: 048
     Dates: start: 20030715, end: 20030922
  3. ZIDOVUDINE [Suspect]
     Indication: PROPHYLAXIS AGAINST HIV INFECTION
     Dosage: 24 MG (6 MG, 4 IN 1D), ORAL
     Route: 048
     Dates: start: 20030922, end: 20031102

REACTIONS (11)
  - ANAEMIA NEONATAL [None]
  - DILATATION INTRAHEPATIC DUCT CONGENITAL [None]
  - DRUG EXPOSURE DURING PREGNANCY [None]
  - FAECES DISCOLOURED [None]
  - FAECES PALE [None]
  - GASTROINTESTINAL DISORDER [None]
  - HAEMANGIOMA CONGENITAL [None]
  - HYPERTROPHY [None]
  - MACROCYTOSIS [None]
  - NEONATAL DISORDER [None]
  - URETHRAL CYST [None]
